FAERS Safety Report 6404788-X (Version None)
Quarter: 2009Q4

REPORT INFORMATION
  Report Type: 
  Country: None (occurrence: None)
  Receive Date: 20091016
  Receipt Date: 20091008
  Transmission Date: 20100525
  Serious: Yes (Hospitalization)
  Sender: FDA-Public Use
  Company Number: PHHO2009JP12441

PATIENT
  Sex: Female
  Weight: 36 kg

DRUGS (8)
  1. EXELON [Suspect]
     Indication: DEMENTIA ALZHEIMER'S TYPE
     Dosage: DL1
     Route: 062
     Dates: start: 20090319, end: 20090408
  2. EXELON [Suspect]
     Dosage: DL2
     Route: 062
     Dates: start: 20090409, end: 20090507
  3. EXELON [Suspect]
     Dosage: DL3
     Route: 062
     Dates: start: 20090508, end: 20090603
  4. EXELON [Suspect]
     Dosage: DL4
     Route: 062
     Dates: start: 20090604
  5. BONALON [Concomitant]
     Indication: OSTEOPOROSIS
     Dosage: UNK
     Dates: start: 20080401
  6. ALLEGRA [Concomitant]
     Indication: DERMATITIS CONTACT
     Dosage: UNK
     Dates: start: 20090603
  7. DERMOVATE [Concomitant]
     Indication: DERMATITIS CONTACT
     Dosage: UNK
  8. LOCOID [Concomitant]
     Indication: DERMATITIS CONTACT
     Dosage: UNK

REACTIONS (13)
  - ABDOMINAL PAIN [None]
  - BLOOD UREA INCREASED [None]
  - C-REACTIVE PROTEIN INCREASED [None]
  - DECREASED APPETITE [None]
  - DEHYDRATION [None]
  - NAUSEA [None]
  - PAIN [None]
  - PNEUMONIA ASPIRATION [None]
  - PYREXIA [None]
  - SUBILEUS [None]
  - VOMITING [None]
  - WHEEZING [None]
  - WHITE BLOOD CELL COUNT INCREASED [None]
